FAERS Safety Report 10011758 (Version 1)
Quarter: 2014Q1

REPORT INFORMATION
  Report Type: Report from Study
  Country: KR (occurrence: KR)
  Receive Date: 20140314
  Receipt Date: 20140314
  Transmission Date: 20141002
  Serious: Yes (Hospitalization)
  Sender: FDA-Public Use
  Company Number: KR-BRISTOL-MYERS SQUIBB COMPANY-20395174

PATIENT
  Age: 65 Year
  Sex: Male

DRUGS (7)
  1. BLINDED: IPILIMUMAB [Suspect]
     Indication: NON-SMALL CELL LUNG CANCER
     Dosage: 25FE14-25FE14 616  MG
     Route: 042
     Dates: start: 20140205, end: 20140225
  2. CARBOPLATIN [Suspect]
     Indication: NON-SMALL CELL LUNG CANCER
     Dosage: 24DEC13-24DEC13?14JA14-14JA14 613 MG?05FE14-05FE14 294 MG?25FE14-25FE14 610 MG
     Route: 042
     Dates: start: 20131224, end: 20140225
  3. PACLITAXEL [Suspect]
     Indication: NON-SMALL CELL LUNG CANCER
     Dosage: 24DE13-24DE13?14JA14-14JA14 291 MG?05FE14-05FE14 294 MG?25FE14-25FE14 292 MG
     Route: 042
     Dates: start: 20131224, end: 20140225
  4. BLINDED: PLACEBO [Suspect]
     Indication: NON-SMALL CELL LUNG CANCER
  5. MEGESTROL [Concomitant]
     Dates: start: 20131224
  6. GABAPENTIN [Concomitant]
     Dates: start: 20140114
  7. IBUPROFEN+ACETAMINOPHEN+CODEINE PHOS [Concomitant]
     Dates: start: 20131224

REACTIONS (1)
  - Febrile neutropenia [Not Recovered/Not Resolved]
